FAERS Safety Report 15290512 (Version 1)
Quarter: 2018Q3

REPORT INFORMATION
  Report Type: Spontaneous
  Country: US (occurrence: US)
  Receive Date: 20180805
  Receipt Date: 20180805
  Transmission Date: 20181010
  Serious: No
  Sender: FDA-Public Use
  Company Number: None

PATIENT
  Age: 51 Year
  Sex: Female
  Weight: 74.25 kg

DRUGS (5)
  1. VIT B [Concomitant]
     Active Substance: VITAMIN B
  2. VITAMIN D [Concomitant]
     Active Substance: CHOLECALCIFEROL
  3. HOLY BASIL SUPPLEMENTS [Concomitant]
  4. ONE A DAY MULTIVITAMINS [Concomitant]
  5. ANASTROZOLE, GENERIC FOR ARIMIDEX [Suspect]
     Active Substance: ANASTROZOLE
     Indication: BREAST CANCER
     Dosage: ?          QUANTITY:1 TABLET(S);?
     Route: 048
     Dates: start: 20180615, end: 20180727

REACTIONS (4)
  - Gait inability [None]
  - Arthralgia [None]
  - Pain in extremity [None]
  - Mood altered [None]

NARRATIVE: CASE EVENT DATE: 20180720
